FAERS Safety Report 9321630 (Version 2)
Quarter: 2013Q3

REPORT INFORMATION
  Report Type: Spontaneous
  Country: FR (occurrence: FR)
  Receive Date: 20130531
  Receipt Date: 20130701
  Transmission Date: 20140515
  Serious: Yes (Other)
  Sender: FDA-Public Use
  Company Number: FR-JNJFOC-20130515511

PATIENT
  Age: 39 Year
  Sex: Female
  Weight: 59 kg

DRUGS (4)
  1. REMICADE [Suspect]
     Indication: PSORIASIS
     Dosage: PATIENT STARTED TREATMENT SINCE MORE THAN A YEAR
     Route: 042
     Dates: start: 20091117
  2. TAHOR [Concomitant]
     Indication: HYPERCHOLESTEROLAEMIA
     Route: 065
     Dates: start: 2007
  3. ETHINYLESTRADIOL [Concomitant]
     Route: 065
  4. GESTODENE [Concomitant]
     Indication: CONTRACEPTION
     Route: 065
     Dates: start: 2007

REACTIONS (1)
  - Monoclonal gammopathy [Unknown]
